FAERS Safety Report 23793463 (Version 1)
Quarter: 2024Q2

REPORT INFORMATION
  Report Type: Spontaneous
  Country: CA (occurrence: CA)
  Receive Date: 20240429
  Receipt Date: 20240429
  Transmission Date: 20240715
  Serious: No
  Sender: FDA-Public Use
  Company Number: CA-BELUSA-2024BELSPO0035

PATIENT

DRUGS (1)
  1. ENOXAPARIN SODIUM [Suspect]
     Active Substance: ENOXAPARIN SODIUM
     Indication: Pulmonary embolism
     Dates: start: 20231231

REACTIONS (3)
  - Weight decreased [Unknown]
  - Therapy change [Unknown]
  - Dizziness [Unknown]
